FAERS Safety Report 19746070 (Version 2)
Quarter: 2021Q3

REPORT INFORMATION
  Report Type: Spontaneous
  Country: IT (occurrence: IT)
  Receive Date: 20210825
  Receipt Date: 20210916
  Transmission Date: 20211014
  Serious: Yes (Other)
  Sender: FDA-Public Use
  Company Number: IT-BAUSCH-BL-2021-027975

PATIENT
  Age: 47 Year
  Sex: Female
  Weight: 115 kg

DRUGS (6)
  1. INSULIN GLARGINE [Suspect]
     Active Substance: INSULIN GLARGINE
     Indication: TYPE 2 DIABETES MELLITUS
     Dosage: 16 LU
     Route: 065
  2. LEVOTHYROXINE. [Suspect]
     Active Substance: LEVOTHYROXINE
     Dosage: 1 DF DAILY FOR 2 DAYS A WEEK
     Route: 065
  3. ATORVASTATIN [Suspect]
     Active Substance: ATORVASTATIN
     Indication: PRODUCT USED FOR UNKNOWN INDICATION
     Dosage: 1 DF DAILY
     Route: 065
  4. LEVOTHYROXINE. [Suspect]
     Active Substance: LEVOTHYROXINE
     Indication: PRODUCT USED FOR UNKNOWN INDICATION
     Dosage: 1 DF DAILY FOR 5 DAYS A WEEK
     Route: 065
  5. GLIMEPIRIDE;PIOGLITAZONE [Suspect]
     Active Substance: GLIMEPIRIDE\PIOGLITAZONE HYDROCHLORIDE
     Indication: TYPE 2 DIABETES MELLITUS
     Dosage: 4MG/30MG 1 DF DAILY
     Route: 065
  6. METFORMIN [Suspect]
     Active Substance: METFORMIN HYDROCHLORIDE
     Indication: TYPE 2 DIABETES MELLITUS
     Dosage: 3 DOSAGES 850 MG DAILY
     Route: 065

REACTIONS (3)
  - Therapy partial responder [Unknown]
  - Hypothyroidism [Unknown]
  - Diabetic metabolic decompensation [Recovering/Resolving]
